FAERS Safety Report 13423074 (Version 1)
Quarter: 2017Q2

REPORT INFORMATION
  Report Type: Spontaneous
  Country: US (occurrence: US)
  Receive Date: 20170410
  Receipt Date: 20170410
  Transmission Date: 20170830
  Serious: Yes (Other)
  Sender: FDA-Public Use
  Company Number: US-ALKERMES INC.-ALK-2017-001247

PATIENT
  Age: 33 Year
  Sex: Female
  Weight: 93.42 kg

DRUGS (2)
  1. VIVITROL [Suspect]
     Active Substance: NALTREXONE
     Indication: DRUG USE DISORDER
     Dosage: 380 MG, QMO
     Route: 030
     Dates: start: 20150813, end: 201611
  2. LISINOPRIL. [Concomitant]
     Active Substance: LISINOPRIL
     Indication: PRODUCT USED FOR UNKNOWN INDICATION
     Dosage: 2025 UNK, UNK

REACTIONS (20)
  - Syncope [Recovered/Resolved]
  - Toothache [Recovered/Resolved]
  - Dysuria [Not Recovered/Not Resolved]
  - Headache [Recovered/Resolved]
  - Wrong technique in product usage process [Recovered/Resolved]
  - Dizziness [Recovered/Resolved]
  - Vomiting [Recovered/Resolved]
  - Injection site mass [Recovered/Resolved]
  - Anxiety [Recovered/Resolved]
  - Muscle spasms [Recovered/Resolved]
  - Arthralgia [Recovered/Resolved]
  - Injection site swelling [Recovered/Resolved]
  - Injection site pain [Recovered/Resolved]
  - Viral upper respiratory tract infection [Recovered/Resolved]
  - Fatigue [Recovered/Resolved]
  - Injection site induration [Recovered/Resolved]
  - Injection site reaction [Recovered/Resolved]
  - Fluid retention [Not Recovered/Not Resolved]
  - Needle issue [Recovered/Resolved]
  - Nausea [Recovered/Resolved]

NARRATIVE: CASE EVENT DATE: 201508
